FAERS Safety Report 5750268-4 (Version None)
Quarter: 2008Q2

REPORT INFORMATION
  Report Type: 
  Country: None (occurrence: None)
  Receive Date: 20080527
  Receipt Date: 20080519
  Transmission Date: 20081010
  Serious: Yes (Death)
  Sender: FDA-Public Use
  Company Number: DE-GENENTECH-261675

PATIENT
  Sex: Female

DRUGS (3)
  1. AVASTIN [Suspect]
     Indication: COLORECTAL CANCER
     Dosage: 10 MG/KG, UNK
  2. MARCUMAR [Suspect]
     Indication: DRUG USE FOR UNKNOWN INDICATION
  3. INTERFERON ALFA [Suspect]
     Indication: COLORECTAL CANCER

REACTIONS (1)
  - DEATH [None]
